FAERS Safety Report 6968799-8 (Version None)
Quarter: 2010Q3

REPORT INFORMATION
  Report Type: 
  Country: None (occurrence: None)
  Receive Date: 20100823
  Receipt Date: 20100526
  Transmission Date: 20110219
  Serious: No
  Sender: FDA-Public Use
  Company Number: 012670

PATIENT
  Sex: Female
  Weight: 113.4 kg

DRUGS (6)
  1. CIMZIA [Suspect]
     Indication: CROHN'S DISEASE
     Dosage: (SUBCUTANEOUS), (SUBCUTANEOUS)
     Route: 058
     Dates: start: 20091201, end: 20100201
  2. CIMZIA [Suspect]
     Indication: CROHN'S DISEASE
     Dosage: (SUBCUTANEOUS), (SUBCUTANEOUS)
     Route: 058
     Dates: start: 20100506
  3. AZULFIDINE [Concomitant]
  4. MERCAPTOPURINE [Concomitant]
  5. CIPROFLOXACIN HYDROCHLORIDE [Concomitant]
  6. EFFEXOR XR [Concomitant]

REACTIONS (4)
  - ASTHENIA [None]
  - BONE PAIN [None]
  - DRUG INEFFECTIVE [None]
  - RASH MACULAR [None]
